FAERS Safety Report 15108209 (Version 1)
Quarter: 2018Q3

REPORT INFORMATION
  Report Type: Other
  Country: DE (occurrence: DE)
  Receive Date: 20180705
  Receipt Date: 20180705
  Transmission Date: 20181010
  Serious: No
  Sender: FDA-Public Use
  Company Number: DE-LUPIN PHARMACEUTICALS INC.-2018-00914

PATIENT
  Age: 52 Year
  Sex: Female
  Weight: 77 kg

DRUGS (5)
  1. ATOZET [Suspect]
     Active Substance: ATORVASTATIN CALCIUM\EZETIMIBE
     Dosage: 10/10
     Route: 048
     Dates: start: 201703, end: 201705
  2. SIMVASTATIN. [Suspect]
     Active Substance: SIMVASTATIN
     Indication: HYPERLIPIDAEMIA
     Dosage: 10
     Route: 048
     Dates: start: 201401, end: 201412
  3. ATORVASTATIN [Suspect]
     Active Substance: ATORVASTATIN
     Indication: HYPERLIPIDAEMIA
     Dosage: 10
     Route: 048
     Dates: start: 201601, end: 201603
  4. ATOZET [Suspect]
     Active Substance: ATORVASTATIN CALCIUM\EZETIMIBE
     Indication: HYPERLIPIDAEMIA
     Dosage: 10/20
     Route: 048
     Dates: start: 201610, end: 201612
  5. PRAVASTATIN. [Suspect]
     Active Substance: PRAVASTATIN
     Indication: HYPERLIPIDAEMIA
     Dosage: 10
     Route: 048
     Dates: start: 201705, end: 201708

REACTIONS (2)
  - Hepatic enzyme increased [Recovered/Resolved]
  - Myalgia [Recovered/Resolved]
